FAERS Safety Report 13668294 (Version 4)
Quarter: 2019Q3

REPORT INFORMATION
  Report Type: Spontaneous
  Country: RU (occurrence: RU)
  Receive Date: 20170620
  Receipt Date: 20190719
  Transmission Date: 20191004
  Serious: Yes (Other)
  Sender: FDA-Public Use
  Company Number: PHHY2017RU087709

PATIENT
  Sex: Female

DRUGS (1)
  1. TASIGNA [Suspect]
     Active Substance: NILOTINIB
     Indication: CHRONIC MYELOID LEUKAEMIA
     Dosage: 800 MG, UNK
     Route: 065

REACTIONS (6)
  - Periorbital oedema [Unknown]
  - Respiratory distress [Unknown]
  - Dyspnoea [Unknown]
  - Lip swelling [Unknown]
  - Angioedema [Recovered/Resolved]
  - Swelling [Unknown]
